FAERS Safety Report 10747600 (Version 2)
Quarter: 2015Q1

REPORT INFORMATION
  Report Type: Spontaneous
  Country: US (occurrence: None)
  Receive Date: 20150127
  Receipt Date: 20150212
  Transmission Date: 20150721
  Serious: Yes (Hospitalization)
  Sender: FDA-Public Use
  Company Number: 2015AP005353

PATIENT
  Age: 37 Year
  Sex: Female
  Weight: 55 kg

DRUGS (12)
  1. FERRIPROX [Suspect]
     Active Substance: DEFERIPRONE
     Indication: HAEMOCHROMATOSIS
     Route: 048
     Dates: start: 20140227, end: 20150102
  2. LASIX [Concomitant]
     Active Substance: FUROSEMIDE
  3. SYNTHROID [Concomitant]
     Active Substance: LEVOTHYROXINE SODIUM
  4. VITAMIN D (ERGOCALCIFEROL) [Concomitant]
     Active Substance: ERGOCALCIFEROL
  5. HUMALOG [Concomitant]
     Active Substance: INSULIN LISPRO
  6. ENALAPRIL [Concomitant]
     Active Substance: ENALAPRIL
  7. PROVERA (MEDROXYPROGESTERONE ACETATE) [Concomitant]
  8. FOLIC ACID. [Concomitant]
     Active Substance: FOLIC ACID
  9. PREMARIN (ESTROGENS CONJUGATED) [Concomitant]
  10. CARVEDILOL. [Concomitant]
     Active Substance: CARVEDILOL
  11. FERRIPROX [Suspect]
     Active Substance: DEFERIPRONE
     Indication: THALASSAEMIA BETA
     Route: 048
     Dates: start: 20140227, end: 20150102
  12. DETROL (TOLTERODINE L-TARTRATE) [Concomitant]

REACTIONS (3)
  - Pneumonia staphylococcal [None]
  - Sepsis [None]
  - Back pain [None]

NARRATIVE: CASE EVENT DATE: 20141231
